FAERS Safety Report 5406228-6 (Version None)
Quarter: 2007Q3

REPORT INFORMATION
  Report Type: 
  Country: None (occurrence: None)
  Receive Date: 20070802
  Receipt Date: 20070802
  Transmission Date: 20080115
  Serious: Yes (Life-Threatening, Hospitalization)
  Sender: FDA-Public Use
  Company Number: None

PATIENT
  Age: 81 Year
  Sex: Male
  Weight: 90.7194 kg

DRUGS (2)
  1. LAMISIL [Suspect]
     Indication: FUNGAL INFECTION
     Dosage: 1 TAB PER DAY PO
     Route: 048
     Dates: start: 20070212, end: 20070215
  2. COUMADIN [Suspect]
     Indication: ANTICOAGULANT THERAPY
     Dosage: 1 MG PER DAY PO
     Route: 048
     Dates: start: 20040101, end: 20070801

REACTIONS (7)
  - AGITATION [None]
  - CONFUSIONAL STATE [None]
  - DEPRESSION [None]
  - FUNGAL INFECTION [None]
  - HAEMORRHAGE [None]
  - TINNITUS [None]
  - ULCER [None]
